FAERS Safety Report 15571217 (Version 4)
Quarter: 2019Q2

REPORT INFORMATION
  Report Type: Report from Study
  Country: CO (occurrence: CO)
  Receive Date: 20181031
  Receipt Date: 20190416
  Transmission Date: 20190711
  Serious: Yes (Hospitalization, Other)
  Sender: FDA-Public Use
  Company Number: CO-ACTELION-A-CH2018-181165

PATIENT
  Age: 13 Year
  Sex: Male
  Weight: 23 kg

DRUGS (3)
  1. TRACLEER [Suspect]
     Active Substance: BOSENTAN
     Dosage: 62.5 MG, QD
     Route: 048
  2. TRACLEER [Suspect]
     Active Substance: BOSENTAN
     Indication: PULMONARY ARTERIAL HYPERTENSION
     Dosage: 125 MG, QD
     Route: 048
     Dates: start: 20110608
  3. SILDENAFIL. [Concomitant]
     Active Substance: SILDENAFIL
     Route: 048

REACTIONS (8)
  - Ligament sprain [Not Recovered/Not Resolved]
  - Dystonia [Recovering/Resolving]
  - Cerebrovascular accident [Recovering/Resolving]
  - Grip strength decreased [Not Recovered/Not Resolved]
  - Unevaluable event [Recovering/Resolving]
  - Aphasia [Recovering/Resolving]
  - Coagulopathy [Recovering/Resolving]
  - Adverse event [Recovering/Resolving]

NARRATIVE: CASE EVENT DATE: 20180927
